FAERS Safety Report 16191754 (Version 2)
Quarter: 2019Q2

REPORT INFORMATION
  Report Type: Spontaneous
  Country: US (occurrence: US)
  Receive Date: 20190412
  Receipt Date: 20190412
  Transmission Date: 20190711
  Serious: Yes (Death, Life-Threatening, Other)
  Sender: FDA-Public Use
  Company Number: PHHY2019US078863

PATIENT
  Age: 40 Year
  Sex: Female

DRUGS (2)
  1. CICLOSPORIN [Suspect]
     Active Substance: CYCLOSPORINE
     Indication: STEM CELL TRANSPLANT
     Route: 065
  2. CICLOSPORIN [Suspect]
     Active Substance: CYCLOSPORINE
     Indication: IMMUNOSUPPRESSANT DRUG THERAPY

REACTIONS (11)
  - Multiple organ dysfunction syndrome [Unknown]
  - Hepatic enzyme abnormal [Unknown]
  - Pneumatosis intestinalis [Unknown]
  - Thrombocytopenia [Unknown]
  - Thrombotic microangiopathy [Fatal]
  - Intestinal ischaemia [Unknown]
  - Blood creatinine abnormal [Unknown]
  - Gastrointestinal necrosis [Unknown]
  - Clostridium difficile infection [Unknown]
  - Anaemia macrocytic [Unknown]
  - Pancytopenia [Unknown]
